FAERS Safety Report 15321043 (Version 1)
Quarter: 2018Q3

REPORT INFORMATION
  Report Type: Spontaneous
  Country: US (occurrence: US)
  Receive Date: 20180821
  Receipt Date: 20180821
  Transmission Date: 20181010
  Serious: No
  Sender: FDA-Public Use
  Company Number: None

PATIENT
  Age: 42 Year
  Sex: Female
  Weight: 50.4 kg

DRUGS (3)
  1. TERBINAFINE HCL ORAL TABLET 250 MG [Suspect]
     Active Substance: TERBINAFINE HYDROCHLORIDE
     Indication: ONYCHOMYCOSIS
     Dosage: ?          QUANTITY:1 TABLET(S);?
     Route: 048
  2. MVI [Concomitant]
     Active Substance: VITAMINS
  3. VITAMIN D [Concomitant]
     Active Substance: CHOLECALCIFEROL

REACTIONS (6)
  - Nausea [None]
  - Rash erythematous [None]
  - Tachycardia [None]
  - Rash pruritic [None]
  - Dizziness [None]
  - Pruritus [None]

NARRATIVE: CASE EVENT DATE: 20180725
